FAERS Safety Report 11833777 (Version 4)
Quarter: 2016Q1

REPORT INFORMATION
  Report Type: Report from Study
  Country: BR (occurrence: BR)
  Receive Date: 20151214
  Receipt Date: 20160329
  Transmission Date: 20160525
  Serious: Yes (Hospitalization, Other)
  Sender: FDA-Public Use
  Company Number: PHHY2015BR163243

PATIENT
  Age: 77 Year
  Sex: Female
  Weight: 76 kg

DRUGS (7)
  1. SUSTRATE [Concomitant]
     Active Substance: PROPATYL NITRATE
     Indication: CARDIAC DISORDER
     Dosage: 1 DF (10 MG), QD
     Route: 048
  2. DIOVAN HCT [Suspect]
     Active Substance: HYDROCHLOROTHIAZIDE\VALSARTAN
     Indication: HYPERTENSION
     Dosage: 1 DF, QD (28 TABLETS) 320 MG OF VALSARTAN 12.5 MG OF HYDROCHLOROTHIAZIDE
     Route: 048
     Dates: end: 20151120
  3. DIAMICRON MR [Concomitant]
     Active Substance: GLICLAZIDE
     Indication: PRODUCT USED FOR UNKNOWN INDICATION
     Dosage: 1 DF (60 MG), QD
     Route: 048
  4. LANTUS [Concomitant]
     Active Substance: INSULIN GLARGINE
     Indication: PRODUCT USED FOR UNKNOWN INDICATION
     Dosage: 10 U, QD (AT NIGHT)
     Route: 058
  5. ONGLYZA [Concomitant]
     Active Substance: SAXAGLIPTIN HYDROCHLORIDE
     Indication: PRODUCT USED FOR UNKNOWN INDICATION
     Dosage: 1 DF (5 MG), QD
     Route: 048
  6. VASTAREL [Concomitant]
     Active Substance: TRIMETAZIDINE DIHYDROCHLORIDE
     Indication: CARDIAC DISORDER
     Dosage: 2 DF (35 MG), QD
     Route: 048
  7. COREG [Concomitant]
     Active Substance: CARVEDILOL
     Indication: CARDIAC DISORDER
     Dosage: 2 DF (25 MG), QD
     Route: 048

REACTIONS (6)
  - Upper limb fracture [Recovering/Resolving]
  - Fall [Recovering/Resolving]
  - Hypotension [Recovered/Resolved]
  - Lower limb fracture [Recovering/Resolving]
  - Dizziness [Recovered/Resolved]
  - Labyrinthitis [Recovered/Resolved]

NARRATIVE: CASE EVENT DATE: 20151119
